FAERS Safety Report 23658588 (Version 1)
Quarter: 2024Q1

REPORT INFORMATION
  Report Type: Report from Study
  Country: US (occurrence: US)
  Receive Date: 20240321
  Receipt Date: 20240321
  Transmission Date: 20240409
  Serious: Yes (Other)
  Sender: FDA-Public Use
  Company Number: US-PFIZER INC-202400068908

PATIENT
  Age: 78 Year
  Sex: Female

DRUGS (1)
  1. INLYTA [Suspect]
     Active Substance: AXITINIB
     Dosage: 5 MG, 2X/DAY
     Route: 048
     Dates: start: 20240309, end: 20240312

REACTIONS (1)
  - Urinary tract obstruction [Not Recovered/Not Resolved]

NARRATIVE: CASE EVENT DATE: 20240301
